FAERS Safety Report 20352567 (Version 1)
Quarter: 2022Q1

REPORT INFORMATION
  Report Type: Report from Study
  Country: IT (occurrence: IT)
  Receive Date: 20220119
  Receipt Date: 20220119
  Transmission Date: 20220423
  Serious: Yes (Other)
  Sender: FDA-Public Use
  Company Number: IT-UCBSA-2022001453

PATIENT
  Sex: Female

DRUGS (4)
  1. LACOSAMIDE [Suspect]
     Active Substance: LACOSAMIDE
     Indication: Epilepsy
     Dosage: 50 MILLIGRAM, UNK
  2. LACOSAMIDE [Suspect]
     Active Substance: LACOSAMIDE
     Dosage: DOSE INCREASE UNK
  3. LACOSAMIDE [Suspect]
     Active Substance: LACOSAMIDE
     Dosage: GRADUAL DOSE REDUCE AND SUSPEND
     Dates: start: 20220107, end: 202201
  4. KEPPRA [Suspect]
     Active Substance: LEVETIRACETAM
     Indication: Product used for unknown indication
     Dosage: UNK

REACTIONS (8)
  - Condition aggravated [Unknown]
  - Seizure [Unknown]
  - Weight decreased [Unknown]
  - Muscular weakness [Unknown]
  - Tremor [Unknown]
  - Dyskinesia [Unknown]
  - Dizziness [Unknown]
  - Drug ineffective [Unknown]
